FAERS Safety Report 8041251-7 (Version None)
Quarter: 2012Q1

REPORT INFORMATION
  Report Type: 
  Country: None (occurrence: None)
  Receive Date: 20120112
  Receipt Date: 20120106
  Transmission Date: 20120608
  Serious: No
  Sender: FDA-Public Use
  Company Number: US-PFIZER INC-2012006045

PATIENT
  Age: 34 Year
  Sex: Male

DRUGS (12)
  1. OXYCONTIN [Concomitant]
  2. ZANAFLEX [Concomitant]
     Dosage: UNK
  3. LYRICA [Suspect]
     Indication: NEURALGIA
     Dosage: UNK
  4. PEPCID [Concomitant]
  5. XANAX [Concomitant]
     Dosage: UNK
  6. CYMBALTA [Concomitant]
  7. SENOKOT [Concomitant]
     Dosage: UNK
  8. DITROPAN [Concomitant]
  9. NEURONTIN [Suspect]
     Indication: NEURALGIA
     Dosage: UNK
  10. BACLOFEN [Concomitant]
     Dosage: UNK
  11. COUMADIN [Concomitant]
     Dosage: UNK
  12. ACIDOPHILUS [Concomitant]

REACTIONS (6)
  - ABDOMINAL PAIN UPPER [None]
  - SOMNOLENCE [None]
  - DRUG INEFFECTIVE [None]
  - DRY MOUTH [None]
  - FATIGUE [None]
  - DYSGEUSIA [None]
